FAERS Safety Report 14669935 (Version 4)
Quarter: 2018Q2

REPORT INFORMATION
  Report Type: Spontaneous
  Country: US (occurrence: US)
  Receive Date: 20180322
  Receipt Date: 20180608
  Transmission Date: 20180711
  Serious: Yes (Hospitalization, Other)
  Sender: FDA-Public Use
  Company Number: US-GLAXOSMITHKLINE-US2018048483

PATIENT
  Age: 62 Year
  Sex: Female
  Weight: 96.6 kg

DRUGS (1)
  1. VENTOLIN HFA [Suspect]
     Active Substance: ALBUTEROL SULFATE
     Indication: WHEEZING
     Dosage: 2 PUFF(S), PRN
     Route: 055
     Dates: start: 2011

REACTIONS (10)
  - Product storage error [Unknown]
  - Wrong technique in product usage process [Unknown]
  - Product quality issue [Unknown]
  - Intracranial aneurysm [Unknown]
  - Dyspnoea [Unknown]
  - Chest discomfort [Unknown]
  - Underdose [Unknown]
  - Chronic obstructive pulmonary disease [Recovered/Resolved]
  - Aneurysm [Unknown]
  - Aneurysm repair [Unknown]

NARRATIVE: CASE EVENT DATE: 201302
